FAERS Safety Report 20012955 (Version 2)
Quarter: 2021Q4

REPORT INFORMATION
  Report Type: Spontaneous
  Country: US (occurrence: US)
  Receive Date: 20211029
  Receipt Date: 20211104
  Transmission Date: 20220303
  Serious: No
  Sender: FDA-Public Use
  Company Number: US-PFIZER INC-2021117050

PATIENT
  Age: 52 Year
  Sex: Female

DRUGS (1)
  1. PREMPRO [Suspect]
     Active Substance: ESTROGENS, CONJUGATED\MEDROXYPROGESTERONE ACETATE
     Dosage: UNK (0.625/2.5 ORAL TABS)
     Route: 048

REACTIONS (2)
  - Product prescribing error [Unknown]
  - Product dispensing error [Unknown]
